FAERS Safety Report 9564101 (Version 1)
Quarter: 2013Q3

REPORT INFORMATION
  Report Type: Spontaneous
  Country: GB (occurrence: GB)
  Receive Date: 20130929
  Receipt Date: 20130929
  Transmission Date: 20140515
  Serious: Yes (Other)
  Sender: FDA-Public Use
  Company Number: GB-009507513-1309GBR013077

PATIENT
  Age: 47 Year
  Sex: Female

DRUGS (4)
  1. FOSAMAX [Suspect]
     Dosage: UNK
  2. AREDIA [Concomitant]
     Indication: METASTASES TO BONE
     Dosage: UNK
  3. MONTELUKAST [Concomitant]
     Dosage: STEROID INHALER
     Route: 055
  4. MYCOPHENOLATE SODIUM [Concomitant]

REACTIONS (1)
  - Neoplasm malignant [Unknown]
